FAERS Safety Report 17116916 (Version 1)
Quarter: 2019Q4

REPORT INFORMATION
  Report Type: Spontaneous
  Country: PT (occurrence: PT)
  Receive Date: 20191205
  Receipt Date: 20191205
  Transmission Date: 20200122
  Serious: Yes (Hospitalization, Other)
  Sender: FDA-Public Use
  Company Number: PT-MYLANLABS-2019M1118741

PATIENT
  Age: 47 Year
  Sex: Female

DRUGS (4)
  1. PARACETAMOL [Suspect]
     Active Substance: ACETAMINOPHEN
     Indication: PYREXIA
     Dosage: 1000 MG, Q6H
     Route: 065
  2. SIMVASTATIN. [Suspect]
     Active Substance: SIMVASTATIN
     Dosage: UNK
     Route: 065
  3. LEVOFLOXACIN. [Concomitant]
     Active Substance: LEVOFLOXACIN
     Indication: PNEUMONIA LEGIONELLA
     Dosage: 500 MILLIGRAM, QD
  4. SIMVASTATIN. [Suspect]
     Active Substance: SIMVASTATIN
     Indication: HYPERCHOLESTEROLAEMIA
     Dosage: 20 MG, UNK
     Route: 065

REACTIONS (9)
  - Pneumonia legionella [Recovered/Resolved]
  - Hyperhidrosis [Unknown]
  - Hypoxia [Unknown]
  - Fatigue [Not Recovered/Not Resolved]
  - Leukocytosis [Unknown]
  - Hyponatraemia [Recovering/Resolving]
  - Weight increased [Unknown]
  - Respiratory alkalosis [Unknown]
  - Neutrophilia [Recovering/Resolving]

NARRATIVE: CASE EVENT DATE: 20141110
